FAERS Safety Report 24853384 (Version 1)
Quarter: 2025Q1

REPORT INFORMATION
  Report Type: Report from Study
  Country: US (occurrence: US)
  Receive Date: 20250117
  Receipt Date: 20250117
  Transmission Date: 20250408
  Serious: No
  Sender: SANDOZ
  Company Number: US-SANDOZ-SDZ2025US002004

PATIENT
  Age: 14 Year
  Sex: Male

DRUGS (2)
  1. OMNITROPE [Suspect]
     Active Substance: SOMATROPIN
     Indication: Product used for unknown indication
     Dosage: 1.6 MG ONCE DAILY
     Route: 058
     Dates: start: 20210415
  2. OMNITROPE [Suspect]
     Active Substance: SOMATROPIN
     Indication: Product used for unknown indication
     Dosage: 1.6 MG ONCE DAILY
     Route: 058
     Dates: start: 20210415

REACTIONS (2)
  - Incorrect dose administered by device [Unknown]
  - Device dislocation [Unknown]

NARRATIVE: CASE EVENT DATE: 20250102
